FAERS Safety Report 17711634 (Version 4)
Quarter: 2020Q2

REPORT INFORMATION
  Report Type: Spontaneous
  Country: US (occurrence: US)
  Receive Date: 20200427
  Receipt Date: 20200512
  Transmission Date: 20200714
  Serious: Yes (Other)
  Sender: FDA-Public Use
  Company Number: US-PFIZER INC-2020164643

PATIENT
  Age: 10 Month
  Sex: Male
  Weight: 9.1 kg

DRUGS (1)
  1. ROCEPHIN [Suspect]
     Active Substance: CEFTRIAXONE SODIUM
     Indication: EAR INFECTION
     Dosage: 500 MG, SINGLE (1 INJECTION)
     Route: 030
     Dates: start: 20200402

REACTIONS (4)
  - Erythema [Recovered/Resolved]
  - Irritability [Unknown]
  - Injection site pain [Recovering/Resolving]
  - Injection site mass [Recovered/Resolved]

NARRATIVE: CASE EVENT DATE: 20200402
